FAERS Safety Report 12137032 (Version 1)
Quarter: 2016Q1

REPORT INFORMATION
  Report Type: Spontaneous
  Country: US (occurrence: US)
  Receive Date: 20160302
  Receipt Date: 20160302
  Transmission Date: 20160526
  Serious: No
  Sender: FDA-Public Use
  Company Number: US-PERRIGO-15US010464

PATIENT
  Age: 68 Year
  Sex: Female
  Weight: 102.4 kg

DRUGS (2)
  1. GOOD NEIGHBOR PHARMACY ANTI DIARRHEAL [Suspect]
     Active Substance: LOPERAMIDE HYDROCHLORIDE
     Dosage: 8 MG, SINGLE
     Route: 048
     Dates: start: 20151004, end: 20151004
  2. GOOD NEIGHBOR PHARMACY ANTI DIARRHEAL [Suspect]
     Active Substance: LOPERAMIDE HYDROCHLORIDE
     Indication: DIARRHOEA
     Dosage: 4 MG AFTER 1ST LOOSE STOOL, 2 MG AFTER EACH SUBSEQUENT LOOSE STOOL, PRN
     Route: 048
     Dates: end: 20151003

REACTIONS (3)
  - Incorrect dose administered [Recovered/Resolved]
  - Expired product administered [Recovered/Resolved]
  - No adverse event [Recovered/Resolved]

NARRATIVE: CASE EVENT DATE: 20151004
